FAERS Safety Report 13202457 (Version 4)
Quarter: 2017Q3

REPORT INFORMATION
  Report Type: Spontaneous
  Country: US (occurrence: US)
  Receive Date: 20170209
  Receipt Date: 20170919
  Transmission Date: 20171127
  Serious: No
  Sender: FDA-Public Use
  Company Number: US-PFIZER INC-2017054880

PATIENT
  Age: 59 Year
  Sex: Female

DRUGS (1)
  1. XELJANZ XR [Suspect]
     Active Substance: TOFACITINIB CITRATE
     Dosage: 11 MG, UNK

REACTIONS (7)
  - Nasopharyngitis [Unknown]
  - Ligament rupture [Unknown]
  - Sinusitis [Unknown]
  - Musculoskeletal pain [Unknown]
  - Malaise [Unknown]
  - Feeling abnormal [Unknown]
  - Tendon rupture [Unknown]

NARRATIVE: CASE EVENT DATE: 201703
